FAERS Safety Report 17653153 (Version 2)
Quarter: 2020Q3

REPORT INFORMATION
  Report Type: Spontaneous
  Country: US (occurrence: US)
  Receive Date: 20200409
  Receipt Date: 20200720
  Transmission Date: 20201102
  Serious: Yes (Other)
  Sender: FDA-Public Use
  Company Number: NVSC2020US095128

PATIENT
  Age: 68 Year
  Sex: Female

DRUGS (2)
  1. BEOVU [Suspect]
     Active Substance: BROLUCIZUMAB-DBLL
     Indication: NEOVASCULAR AGE-RELATED MACULAR DEGENERATION
     Dosage: 0.05 MG (ONE SINGLE DOSE) (BOTH EYES)
     Route: 047
     Dates: start: 20200211, end: 20200211
  2. EYLEA [Suspect]
     Active Substance: AFLIBERCEPT
     Indication: AGE-RELATED MACULAR DEGENERATION
     Dosage: UNK (BOTH EYES)
     Route: 065
     Dates: start: 201810

REACTIONS (5)
  - Vitritis [Unknown]
  - Intraocular pressure increased [Unknown]
  - Eye pain [Unknown]
  - Uveitis [Not Recovered/Not Resolved]
  - Vitreous floaters [Unknown]

NARRATIVE: CASE EVENT DATE: 20200406
